FAERS Safety Report 9107307 (Version 1)
Quarter: 2013Q1

REPORT INFORMATION
  Report Type: Spontaneous
  Country: US (occurrence: US)
  Receive Date: 20130221
  Receipt Date: 20130221
  Transmission Date: 20140127
  Serious: Yes (Congenital Anomaly, Other)
  Sender: FDA-Public Use
  Company Number: US-WATSON-2013-02846

PATIENT
  Sex: 0

DRUGS (1)
  1. CARBOPLATIN (WATSON LABORATORIES) [Suspect]
     Indication: MALIGNANT NERVOUS SYSTEM NEOPLASM
     Dosage: UNK, UNKNOWN
     Route: 064

REACTIONS (2)
  - Gastroschisis [Unknown]
  - Foetal exposure during pregnancy [Unknown]
